FAERS Safety Report 5468606-9 (Version None)
Quarter: 2007Q3

REPORT INFORMATION
  Report Type: 
  Country: None (occurrence: None)
  Receive Date: 20070926
  Receipt Date: 20070917
  Transmission Date: 20080115
  Serious: Yes (Other)
  Sender: FDA-Public Use
  Company Number: HQWYE830227AUG07

PATIENT
  Sex: Female
  Weight: 52.21 kg

DRUGS (1)
  1. EFFEXOR XR [Suspect]
     Indication: ANXIETY
     Dosage: 37.5 MG EVERY 1 TOT
     Route: 048
     Dates: start: 20070823, end: 20070823

REACTIONS (4)
  - ANXIETY [None]
  - EMOTIONAL DISORDER [None]
  - HYPOAESTHESIA [None]
  - TREMOR [None]
